FAERS Safety Report 24147911 (Version 3)
Quarter: 2024Q3

REPORT INFORMATION
  Report Type: Report from Study
  Country: US (occurrence: US)
  Receive Date: 20240729
  Receipt Date: 20240816
  Transmission Date: 20241017
  Serious: No
  Sender: ABBVIE
  Company Number: US-ABBVIE-5852709

PATIENT
  Age: 40 Year
  Sex: Female
  Weight: 86 kg

DRUGS (1)
  1. CREON [Suspect]
     Active Substance: PANCRELIPASE AMYLASE\PANCRELIPASE LIPASE\PANCRELIPASE PROTEASE
     Indication: Pancreatic failure
     Dosage: STARTED AT LEAST 10 YEARS AGO
     Route: 048

REACTIONS (7)
  - Therapeutic product effect decreased [Recovered/Resolved]
  - Malabsorption [Unknown]
  - Product size issue [Unknown]
  - Abdominal pain [Recovered/Resolved]
  - Off label use [Unknown]
  - Steatorrhoea [Recovered/Resolved]
  - Diarrhoea [Recovered/Resolved]

NARRATIVE: CASE EVENT DATE: 20240601
